FAERS Safety Report 18298992 (Version 2)
Quarter: 2020Q3

REPORT INFORMATION
  Report Type: Spontaneous
  Country: US (occurrence: US)
  Receive Date: 20200922
  Receipt Date: 20200929
  Transmission Date: 20201103
  Serious: Yes (Hospitalization, Other)
  Sender: FDA-Public Use
  Company Number: US-ALLERGAN-2034438US

PATIENT
  Sex: Male

DRUGS (1)
  1. NORCO [Suspect]
     Active Substance: ACETAMINOPHEN\HYDROCODONE BITARTRATE
     Indication: PROCEDURAL PAIN
     Dosage: 10 MG 2?3 TIMES DAILY EVERY 6 HOURS
     Route: 065
     Dates: end: 2005

REACTIONS (6)
  - Withdrawal syndrome [Recovered/Resolved]
  - Suicidal ideation [Recovered/Resolved]
  - Bipolar I disorder [Recovered/Resolved]
  - Impaired quality of life [Unknown]
  - Depression [Unknown]
  - Dependence [Recovered/Resolved]
